FAERS Safety Report 11559581 (Version 1)
Quarter: 2015Q3

REPORT INFORMATION
  Report Type: Spontaneous
  Country: US (occurrence: None)
  Receive Date: 20150925
  Receipt Date: 20150925
  Transmission Date: 20151125
  Serious: No
  Sender: FDA-Public Use
  Company Number: None

PATIENT
  Age: 82 Year
  Sex: Male
  Weight: 71.22 kg

DRUGS (16)
  1. NEURONTIN [Suspect]
     Active Substance: GABAPENTIN
     Indication: PAIN IN EXTREMITY
     Dosage: BY MOUTH, 1 CAPSULE - 1 WEEK, 2 CAPSULES 1 WEEK, 3 CAPSULE NIGHTLY
     Dates: start: 20150528, end: 20150729
  2. METHIMAZOLE. [Concomitant]
     Active Substance: METHIMAZOLE
  3. AMLODIPINE [Concomitant]
     Active Substance: AMLODIPINE BESYLATE
  4. TYLENOL [Concomitant]
     Active Substance: ACETAMINOPHEN
  5. FLAXSEED [Concomitant]
     Active Substance: FLAX SEED
  6. VITAMIN D3 [Concomitant]
     Active Substance: CHOLECALCIFEROL
  7. NEURONTIN [Suspect]
     Active Substance: GABAPENTIN
     Indication: BURNING SENSATION
     Dosage: BY MOUTH, 1 CAPSULE - 1 WEEK, 2 CAPSULES 1 WEEK, 3 CAPSULE NIGHTLY
     Dates: start: 20150528, end: 20150729
  8. OMEPRAZOLE. [Concomitant]
     Active Substance: OMEPRAZOLE
  9. ATORVASTATIN [Concomitant]
     Active Substance: ATORVASTATIN
  10. FLUTICASONE [Concomitant]
     Active Substance: FLUTICASONE\FLUTICASONE PROPIONATE
  11. HYDROCHLROTHIAZIDE [Concomitant]
  12. CENTRUM SILVER [Concomitant]
     Active Substance: VITAMINS
  13. ASMANEX [Concomitant]
     Active Substance: MOMETASONE FUROATE
  14. PROAIR HFA [Concomitant]
     Active Substance: ALBUTEROL SULFATE
  15. VITAMIN E [Concomitant]
     Active Substance: .ALPHA.-TOCOPHEROL
  16. CALCIUM [Concomitant]
     Active Substance: CALCIUM

REACTIONS (8)
  - Nocturia [None]
  - Eye movement disorder [None]
  - Vision blurred [None]
  - Confusional state [None]
  - Lip dry [None]
  - Dry mouth [None]
  - Impaired driving ability [None]
  - Disorientation [None]
